FAERS Safety Report 17763022 (Version 2)
Quarter: 2020Q2

REPORT INFORMATION
  Report Type: Spontaneous
  Country: US (occurrence: US)
  Receive Date: 20200508
  Receipt Date: 20200514
  Transmission Date: 20200714
  Serious: Yes (Other)
  Sender: FDA-Public Use
  Company Number: US-PFIZER INC-2020181616

PATIENT
  Sex: Male

DRUGS (1)
  1. MAGNESIUM SULFATE. [Suspect]
     Active Substance: MAGNESIUM SULFATE
     Indication: PRE-ECLAMPSIA
     Dosage: UNK
     Route: 064

REACTIONS (13)
  - Retinopathy of prematurity [Unknown]
  - Failure to thrive [Unknown]
  - Infantile apnoea [Unknown]
  - Newborn persistent pulmonary hypertension [Unknown]
  - Premature baby [Unknown]
  - Anaemia neonatal [Unknown]
  - Soft tissue mass [Unknown]
  - Bronchopulmonary dysplasia [Unknown]
  - Infantile haemangioma [Unknown]
  - Axillary mass [Unknown]
  - Maternal exposure timing unspecified [Unknown]
  - Foetal growth restriction [Unknown]
  - Postnatal growth restriction [Unknown]
